FAERS Safety Report 4314259-2 (Version None)
Quarter: 2004Q1

REPORT INFORMATION
  Report Type: 
  Country: None (occurrence: None)
  Receive Date: 20040309
  Receipt Date: 20040309
  Transmission Date: 20041129
  Serious: No
  Sender: FDA-Public Use
  Company Number: None

PATIENT
  Age: 39 Year
  Sex: Female
  Weight: 80.7403 kg

DRUGS (1)
  1. SENSORCAINE [Suspect]

REACTIONS (1)
  - DRUG EFFECT DECREASED [None]
